FAERS Safety Report 10194972 (Version 2)
Quarter: 2014Q2

REPORT INFORMATION
  Report Type: Spontaneous
  Country: US (occurrence: US)
  Receive Date: 20140526
  Receipt Date: 20140611
  Transmission Date: 20141212
  Serious: No
  Sender: FDA-Public Use
  Company Number: US-PFIZER INC-2014143618

PATIENT
  Age: 61 Year
  Sex: Female

DRUGS (5)
  1. EFFEXOR XR [Suspect]
     Indication: DEPRESSION
     Dosage: UNK
  2. EFFEXOR XR [Suspect]
     Dosage: 220 MG, DAILY
  3. EFFEXOR XR [Suspect]
     Dosage: 300 MG, DAILY
  4. EFFEXOR XR [Suspect]
     Dosage: UNK, DAILY
  5. EFFEXOR XR [Suspect]
     Dosage: UNK

REACTIONS (2)
  - Fibromyalgia [Unknown]
  - Therapeutic response changed [Unknown]
